FAERS Safety Report 17362030 (Version 1)
Quarter: 2020Q1

REPORT INFORMATION
  Report Type: Spontaneous
  Country: NL (occurrence: NL)
  Receive Date: 20200203
  Receipt Date: 20200203
  Transmission Date: 20200409
  Serious: Yes (Other)
  Sender: FDA-Public Use
  Company Number: NL-PFIZER INC-2020044819

PATIENT
  Age: 53 Year
  Sex: Male

DRUGS (2)
  1. PANTOPRAZOLE [Suspect]
     Active Substance: PANTOPRAZOLE
     Dosage: UNK
  2. MEBENDAZOL [Interacting]
     Active Substance: MEBENDAZOLE
     Dosage: UNK

REACTIONS (2)
  - Haematochezia [Unknown]
  - Drug interaction [Unknown]
